FAERS Safety Report 19379486 (Version 6)
Quarter: 2022Q1

REPORT INFORMATION
  Report Type: Report from Study
  Country: US (occurrence: US)
  Receive Date: 20210607
  Receipt Date: 20220118
  Transmission Date: 20220423
  Serious: No
  Sender: FDA-Public Use
  Company Number: NVSC2021US120051

PATIENT
  Age: 49 Year
  Sex: Male

DRUGS (4)
  1. ENTRESTO [Suspect]
     Active Substance: SACUBITRIL\VALSARTAN
     Indication: Cardiac failure
     Dosage: 24.26 MG, BID
     Route: 048
     Dates: start: 20210515
  2. SPIRONOLACTONE [Suspect]
     Active Substance: SPIRONOLACTONE
     Indication: Cardiac failure
     Dosage: 25 MG, QD
     Route: 048
     Dates: start: 20210727, end: 20210817
  3. METOPROLOL [Suspect]
     Active Substance: METOPROLOL
     Indication: Cardiac failure
     Dosage: 25 MG, QD (25 MG ONE HALF TABLET ONCE A DAY)
     Route: 048
     Dates: start: 20210515
  4. METOPROLOL [Suspect]
     Active Substance: METOPROLOL
     Dosage: 0.5 DF(25 MG), QD
     Route: 048

REACTIONS (12)
  - Blood pressure fluctuation [Recovered/Resolved]
  - Dehydration [Recovered/Resolved]
  - Weight decreased [Recovering/Resolving]
  - Dyspnoea [Recovered/Resolved]
  - Product dose omission issue [Not Recovered/Not Resolved]
  - Ventricular extrasystoles [Unknown]
  - Dizziness [Recovered/Resolved]
  - Cough [Unknown]
  - Nausea [Recovered/Resolved]
  - Asthenia [Recovered/Resolved]
  - Malaise [Unknown]
  - Ejection fraction [Recovering/Resolving]

NARRATIVE: CASE EVENT DATE: 20210521
